FAERS Safety Report 9894414 (Version 3)
Quarter: 2020Q3

REPORT INFORMATION
  Report Type: Report from Study
  Country: GB (occurrence: GB)
  Receive Date: 20140213
  Receipt Date: 20140617
  Transmission Date: 20201105
  Serious: Yes (Hospitalization)
  Sender: FDA-Public Use
  Company Number: PHHY2014GB014444

PATIENT
  Age: 73 Year
  Sex: Female

DRUGS (9)
  1. 5?FLUOROURACIL [Suspect]
     Active Substance: FLUOROURACIL
     Dosage: 4300 MG, 1 IN 2 WK
     Route: 042
     Dates: start: 20130830
  2. 5?FLUOROURACIL [Suspect]
     Active Substance: FLUOROURACIL
     Indication: GASTROOESOPHAGEAL CANCER
     Dosage: 700 MG 1 IN 2 WEEK
     Route: 040
     Dates: start: 20130830
  3. OXALIPLATIN. [Suspect]
     Active Substance: OXALIPLATIN
     Indication: GASTROOESOPHAGEAL CANCER
     Dosage: 150 MG, 1 IN 2 WK
     Route: 042
     Dates: start: 20130830
  4. ONARTUZUMAB. [Suspect]
     Active Substance: ONARTUZUMAB
     Indication: GASTROOESOPHAGEAL CANCER
     Route: 042
     Dates: start: 20130830
  5. BIOTIN [Concomitant]
     Active Substance: BIOTIN
     Indication: MUCOSAL INFLAMMATION
     Dosage: 5 ML, UNK
     Route: 061
     Dates: start: 20130910
  6. FOLINIC ACID [Suspect]
     Active Substance: LEUCOVORIN
     Indication: GASTROOESOPHAGEAL CANCER
     Dosage: 716 MG, 1 IN 2 WK
     Route: 042
     Dates: start: 20130830
  7. LEVOTHYROXINE. [Concomitant]
     Active Substance: LEVOTHYROXINE
     Indication: HYPOTHYROIDISM
     Dosage: 50 UG, UNK
     Route: 048
     Dates: start: 2005
  8. SIMVASTATIN. [Concomitant]
     Active Substance: SIMVASTATIN
     Indication: BLOOD CHOLESTEROL INCREASED
     Dosage: 20 MG, UNK
     Route: 048
     Dates: start: 2012
  9. OMEPRAZOLE. [Concomitant]
     Active Substance: OMEPRAZOLE
     Dosage: 40 MG, UNK
     Route: 048
     Dates: start: 2009

REACTIONS (8)
  - C-reactive protein increased [Unknown]
  - Frequent bowel movements [Unknown]
  - White blood cell count decreased [Recovered/Resolved]
  - Pyrexia [Unknown]
  - Circulatory collapse [Unknown]
  - Vomiting [Recovered/Resolved]
  - Diarrhoea [Recovered/Resolved]
  - Abdominal pain [Unknown]

NARRATIVE: CASE EVENT DATE: 20130908
